FAERS Safety Report 12718601 (Version 4)
Quarter: 2017Q1

REPORT INFORMATION
  Report Type: Report from Study
  Country: US (occurrence: US)
  Receive Date: 20160906
  Receipt Date: 20170117
  Transmission Date: 20170428
  Serious: Yes (Hospitalization, Other)
  Sender: FDA-Public Use
  Company Number: US-ACTELION-A-US2016-141564

PATIENT
  Age: 38 Year
  Sex: Female

DRUGS (2)
  1. VELETRI [Suspect]
     Active Substance: EPOPROSTENOL
     Indication: PULMONARY HYPERTENSION
     Dosage: 9 NG/KG, PER MIN
     Route: 042
     Dates: start: 20160809
  2. SILDENAFIL. [Concomitant]
     Active Substance: SILDENAFIL

REACTIONS (26)
  - Liver disorder [Unknown]
  - Headache [Unknown]
  - Dyspepsia [Unknown]
  - Diarrhoea [Unknown]
  - Vomiting [Unknown]
  - Back pain [Unknown]
  - Eructation [Unknown]
  - Stent placement [Unknown]
  - Nausea [Unknown]
  - Spinal pain [Unknown]
  - Cholecystitis infective [Unknown]
  - Arthralgia [Unknown]
  - Abdominal discomfort [Unknown]
  - Fluid retention [Unknown]
  - Malaise [Unknown]
  - Somnolence [Unknown]
  - Rash [Unknown]
  - Facial pain [Unknown]
  - Abdominal pain upper [Unknown]
  - Dyschezia [Unknown]
  - Cholelithiasis [Unknown]
  - Abdominal pain [Unknown]
  - Muscle fatigue [Unknown]
  - Weight decreased [Unknown]
  - Pain in jaw [Unknown]
  - Decreased appetite [Unknown]
